FAERS Safety Report 24629345 (Version 1)
Quarter: 2024Q4

REPORT INFORMATION
  Report Type: Spontaneous
  Country: SE (occurrence: SE)
  Receive Date: 20241118
  Receipt Date: 20241118
  Transmission Date: 20250114
  Serious: Yes (Other)
  Sender: ROCHE
  Company Number: SE-ROCHE-10000049251

PATIENT

DRUGS (1)
  1. MABTHERA [Suspect]
     Active Substance: RITUXIMAB
     Indication: Sjogren^s syndrome
     Route: 065

REACTIONS (4)
  - Off label use [Unknown]
  - Pancytopenia [Unknown]
  - Vitamin B12 decreased [Unknown]
  - Platelet count decreased [Unknown]
